FAERS Safety Report 5777924-6 (Version None)
Quarter: 2008Q2

REPORT INFORMATION
  Report Type: 
  Country: None (occurrence: None)
  Receive Date: 20080618
  Receipt Date: 20080613
  Transmission Date: 20081010
  Serious: Yes (Death)
  Sender: FDA-Public Use
  Company Number: GB-ALLERGAN-0807266US

PATIENT
  Age: 65 Year
  Sex: Female

DRUGS (1)
  1. BOTOX [Suspect]
     Indication: DYSTONIA
     Dosage: 100 UNITS, SINGLE
     Route: 030
     Dates: start: 20080602, end: 20080602

REACTIONS (2)
  - ASTHENIA [None]
  - RESPIRATORY RATE INCREASED [None]
